FAERS Safety Report 9628787 (Version 3)
Quarter: 2013Q4

REPORT INFORMATION
  Report Type: Spontaneous
  Country: US (occurrence: US)
  Receive Date: 20131017
  Receipt Date: 20131223
  Transmission Date: 20140711
  Serious: Yes (Death, Hospitalization, Other)
  Sender: FDA-Public Use
  Company Number: US-ASTELLAS-2013US010774

PATIENT
  Age: 67 Year
  Sex: Male

DRUGS (2)
  1. PROGRAF [Suspect]
     Indication: LIVER TRANSPLANT
     Dosage: 2 MG AM, 1 MG PM
     Route: 048
     Dates: start: 20030202, end: 20130917
  2. CHEMOTHERAPEUTICS [Concomitant]
     Indication: PRODUCT USED FOR UNKNOWN INDICATION
     Dosage: UNK
     Route: 065

REACTIONS (7)
  - Death [Fatal]
  - Small intestinal resection [Unknown]
  - Colectomy [Unknown]
  - Investigation [Unknown]
  - Pancreatic carcinoma [Unknown]
  - Metastases to liver [Unknown]
  - Diabetes mellitus [Unknown]
